FAERS Safety Report 23190492 (Version 4)
Quarter: 2024Q3

REPORT INFORMATION
  Report Type: Report from Study
  Country: US (occurrence: US)
  Receive Date: 20231116
  Receipt Date: 20240708
  Transmission Date: 20241017
  Serious: Yes (Other)
  Sender: UCB
  Company Number: US-UCBSA-2023047570

PATIENT
  Sex: Female
  Weight: 180 kg

DRUGS (3)
  1. ROTIGOTINE [Interacting]
     Active Substance: ROTIGOTINE
     Indication: Restless legs syndrome
     Dosage: 1 MILLIGRAM, ONCE DAILY (QD)
     Route: 062
  2. ROTIGOTINE [Interacting]
     Active Substance: ROTIGOTINE
     Dosage: 6 MILLIGRAM, ONCE DAILY (QD)
     Route: 062
     Dates: end: 202312
  3. ROPINIROLE [Suspect]
     Active Substance: ROPINIROLE
     Indication: Product used for unknown indication
     Dosage: 2 MILLIGRAM, 2X/DAY (BID)

REACTIONS (14)
  - Lyme disease [Not Recovered/Not Resolved]
  - Delusion of parasitosis [Not Recovered/Not Resolved]
  - Hysterectomy [Not Recovered/Not Resolved]
  - Sleep apnoea syndrome [Not Recovered/Not Resolved]
  - Application site rash [Not Recovered/Not Resolved]
  - Erythema [Not Recovered/Not Resolved]
  - Application site urticaria [Unknown]
  - Abdominal discomfort [Unknown]
  - Application site hypersensitivity [Unknown]
  - Application site erythema [Unknown]
  - Drug interaction [Unknown]
  - Drug ineffective [Unknown]
  - Overdose [Unknown]
  - Nonspecific reaction [Unknown]

NARRATIVE: CASE EVENT DATE: 20230101
